FAERS Safety Report 25613239 (Version 1)
Quarter: 2025Q3

REPORT INFORMATION
  Report Type: Spontaneous
  Country: EU (occurrence: EU)
  Receive Date: 20250728
  Receipt Date: 20250728
  Transmission Date: 20251020
  Serious: Yes (Other)
  Sender: MYLAN
  Company Number: EU-AMGEN-FRASP2025130536

PATIENT
  Sex: Male

DRUGS (8)
  1. DEXAMETHASONE [Suspect]
     Active Substance: DEXAMETHASONE
     Indication: Product used for unknown indication
  2. DEXAMETHASONE [Suspect]
     Active Substance: DEXAMETHASONE
     Route: 065
  3. DEXAMETHASONE [Suspect]
     Active Substance: DEXAMETHASONE
     Route: 065
  4. DEXAMETHASONE [Suspect]
     Active Substance: DEXAMETHASONE
  5. KYPROLIS [Suspect]
     Active Substance: CARFILZOMIB
     Indication: Product used for unknown indication
  6. KYPROLIS [Suspect]
     Active Substance: CARFILZOMIB
     Route: 065
  7. KYPROLIS [Suspect]
     Active Substance: CARFILZOMIB
     Route: 065
  8. KYPROLIS [Suspect]
     Active Substance: CARFILZOMIB

REACTIONS (2)
  - Cardiac disorder [Unknown]
  - Renal disorder [Unknown]
